FAERS Safety Report 5851386-2 (Version None)
Quarter: 2008Q3

REPORT INFORMATION
  Report Type: 
  Country: None (occurrence: None)
  Receive Date: 20080820
  Receipt Date: 20080818
  Transmission Date: 20090109
  Serious: Yes (Other)
  Sender: FDA-Public Use
  Company Number: DE-AVENTIS-200812229DE

PATIENT
  Age: 26 Year
  Sex: Male

DRUGS (1)
  1. FLAGYL [Suspect]
     Route: 048
     Dates: start: 20070222

REACTIONS (1)
  - DEPRESSION [None]
